FAERS Safety Report 5797057-2 (Version None)
Quarter: 2008Q2

REPORT INFORMATION
  Report Type: 
  Country: None (occurrence: None)
  Receive Date: 20080618
  Receipt Date: 20070831
  Transmission Date: 20081010
  Serious: Yes (Other)
  Sender: FDA-Public Use
  Company Number: 200716269US

PATIENT
  Sex: Male

DRUGS (3)
  1. LANTUS [Suspect]
     Dosage: 20 U BID INJ
     Route: 042
  2. LANTUS [Suspect]
     Dosage: 30 U BID INJ
     Route: 042
  3. LANTUS [Suspect]
     Dosage: 30 , 40 HS U AM+HS INJ
     Route: 042

REACTIONS (1)
  - HYPOGLYCAEMIC UNCONSCIOUSNESS [None]
